FAERS Safety Report 6853283-2 (Version None)
Quarter: 2010Q3

REPORT INFORMATION
  Report Type: 
  Country: None (occurrence: None)
  Receive Date: 20100717
  Receipt Date: 20080102
  Transmission Date: 20110219
  Serious: Yes (Other)
  Sender: FDA-Public Use
  Company Number: US-PFIZER INC-2007102043

PATIENT
  Sex: Male
  Weight: 90.7 kg

DRUGS (4)
  1. CHANTIX [Suspect]
     Indication: SMOKING CESSATION THERAPY
     Route: 048
     Dates: start: 20071128, end: 20071129
  2. ATENOLOL [Concomitant]
     Indication: ATRIAL FIBRILLATION
  3. DIGITEK [Concomitant]
     Indication: ATRIAL FIBRILLATION
  4. WARFARIN SODIUM [Concomitant]
     Indication: ATRIAL FIBRILLATION

REACTIONS (3)
  - DISORIENTATION [None]
  - EYE DISORDER [None]
  - LOSS OF CONSCIOUSNESS [None]
